FAERS Safety Report 4537699-5 (Version None)
Quarter: 2004Q4

REPORT INFORMATION
  Report Type: 
  Country: None (occurrence: None)
  Receive Date: 20041216
  Receipt Date: 20040106
  Transmission Date: 20050328
  Serious: Yes (Death)
  Sender: FDA-Public Use
  Company Number: HQWYE189007JAN04

PATIENT

DRUGS (1)
  1. EFFEXOR XR [Suspect]
     Dosage: OVERDOSE AMOUNT UNKNOWN, ORAL
     Route: 048

REACTIONS (1)
  - OVERDOSE [None]
